FAERS Safety Report 5005840-6 (Version None)
Quarter: 2006Q2

REPORT INFORMATION
  Report Type: 
  Country: None (occurrence: None)
  Receive Date: 20060515
  Receipt Date: 20060502
  Transmission Date: 20061013
  Serious: Yes (Death)
  Sender: FDA-Public Use
  Company Number: 2006S1003934

PATIENT
  Age: 84 Year
  Sex: Female

DRUGS (1)
  1. CLOZAPINE [Suspect]
     Dosage: 12.5 MG; QD; ORAL
     Route: 048
     Dates: start: 20030301, end: 20060401

REACTIONS (1)
  - DEATH [None]
